FAERS Safety Report 18686914 (Version 2)
Quarter: 2020Q4

REPORT INFORMATION
  Report Type: Spontaneous
  Country: FI (occurrence: FI)
  Receive Date: 20201231
  Receipt Date: 20201231
  Transmission Date: 20210114
  Serious: Yes (Death)
  Sender: FDA-Public Use
  Company Number: FI-ORION CORPORATION ORION PHARMA-20_00012390

PATIENT
  Age: 59 Year
  Sex: Female

DRUGS (12)
  1. TREXAN (METHOTREXATE) [Suspect]
     Active Substance: METHOTREXATE SODIUM
     Indication: RHEUMATOID ARTHRITIS
     Route: 048
     Dates: start: 201709
  2. COTRIM [Suspect]
     Active Substance: SULFAMETHOXAZOLE\TRIMETHOPRIM
     Indication: PNEUMOCYSTIS JIROVECII PNEUMONIA
     Route: 042
     Dates: start: 20200909, end: 20200914
  3. ONDANSETRON FRESENIUS KABI [Concomitant]
     Indication: NAUSEA
     Route: 042
     Dates: start: 20200914, end: 20200915
  4. ZAROXOLYN [Concomitant]
     Active Substance: METOLAZONE
     Indication: OEDEMA
     Route: 048
     Dates: start: 20200915, end: 20200915
  5. COTRIM FORTE [Suspect]
     Active Substance: SULFAMETHOXAZOLE\TRIMETHOPRIM
     Indication: PNEUMOCYSTIS JIROVECII PNEUMONIA
     Route: 048
     Dates: start: 20200914, end: 20200915
  6. FOLIC ACID VITABALANS [Concomitant]
     Route: 048
     Dates: start: 201709
  7. FUROSEMIDE FRESENIUS KABI [Concomitant]
     Indication: OEDEMA
     Route: 042
     Dates: start: 20200910, end: 20200923
  8. MERONEM [Concomitant]
     Active Substance: MEROPENEM
     Indication: PNEUMONIA
     Route: 042
     Dates: start: 20200910, end: 20200911
  9. SOLU-MEDROL [Concomitant]
     Active Substance: METHYLPREDNISOLONE SODIUM SUCCINATE
     Indication: PNEUMOCYSTIS JIROVECII PNEUMONIA
     Route: 042
     Dates: start: 20200911, end: 20200923
  10. KALEORID [Concomitant]
     Active Substance: POTASSIUM CHLORIDE
     Indication: HYPOKALAEMIA
     Route: 048
     Dates: start: 20200903, end: 20200905
  11. SPIRONOLACTONE ORION [Concomitant]
     Active Substance: SPIRONOLACTONE
     Indication: OEDEMA
     Route: 048
     Dates: start: 20200914, end: 20200915
  12. ROXITHROMYCIN ORIFARM [Concomitant]
     Active Substance: ROXITHROMYCIN
     Indication: PNEUMONIA
     Route: 048
     Dates: start: 20200908, end: 20200911

REACTIONS (10)
  - Pneumocystis jirovecii pneumonia [Fatal]
  - Anuria [Fatal]
  - Fatigue [Fatal]
  - Enterococcal sepsis [Fatal]
  - Myelosuppression [Fatal]
  - Thrombocytopenia [Fatal]
  - Leukopenia [Fatal]
  - Candida sepsis [Fatal]
  - Anaemia [Fatal]
  - Respiratory failure [Fatal]

NARRATIVE: CASE EVENT DATE: 20200824
